FAERS Safety Report 15232640 (Version 2)
Quarter: 2018Q3

REPORT INFORMATION
  Report Type: Spontaneous
  Country: IT (occurrence: IT)
  Receive Date: 20180802
  Receipt Date: 20180827
  Transmission Date: 20181010
  Serious: Yes (Hospitalization)
  Sender: FDA-Public Use
  Company Number: IT-TEVA-2018-IT-932897

PATIENT
  Age: 11 Year
  Sex: Female
  Weight: 71 kg

DRUGS (20)
  1. ANTI?THYMOCYTE GLOBULIN (RABBIT) NOS [Suspect]
     Active Substance: LAPINE T-LYMPHOCYTE IMMUNE GLOBULIN
     Indication: BONE MARROW TRANSPLANT
     Dosage: 137.5 MILLIGRAM DAILY;
     Route: 042
     Dates: start: 20171113, end: 20171115
  2. THIOTEPA. [Suspect]
     Active Substance: THIOTEPA
     Indication: ALLOGENIC BONE MARROW TRANSPLANTATION THERAPY
     Dosage: 275 MILLIGRAM DAILY;
     Route: 042
     Dates: start: 20171111, end: 20171112
  3. LASIX [Concomitant]
     Active Substance: FUROSEMIDE
     Dosage: 108 MILLIGRAM DAILY;
     Route: 042
     Dates: start: 20171110
  4. URSODEOXYCHOLIC ACID [Concomitant]
     Active Substance: URSODIOL
     Dosage: 600 MILLIGRAM DAILY;
     Route: 065
  5. METHOTREXATE SODIUM. [Suspect]
     Active Substance: METHOTREXATE SODIUM
     Indication: ALLOGENIC BONE MARROW TRANSPLANTATION THERAPY
     Route: 042
     Dates: start: 20171119, end: 20171124
  6. ANTRA [Concomitant]
     Active Substance: OMEPRAZOLE
     Dosage: 40 MILLIGRAM DAILY;
     Route: 042
  7. ACICLOVIR [Concomitant]
     Active Substance: ACYCLOVIR
     Dosage: 1800 MILLIGRAM DAILY;
     Route: 042
     Dates: start: 20171114, end: 20171211
  8. NYSTATIN. [Concomitant]
     Active Substance: NYSTATIN
     Dosage: 15 ML DAILY;
  9. TRIMETON [Concomitant]
     Active Substance: CHLORPHENIRAMINE MALEATE
     Dosage: 2 DOSAGE FORMS DAILY;
     Route: 065
  10. RANITIDINE HYDROCHLORIDE. [Concomitant]
     Active Substance: RANITIDINE HYDROCHLORIDE
     Dosage: 150 MILLIGRAM DAILY;
     Route: 042
  11. TACHIPIRINA [Concomitant]
     Active Substance: ACETAMINOPHEN
     Dosage: 1 GRAM DAILY;
     Route: 048
  12. URBASON [Concomitant]
     Active Substance: METHYLPREDNISOLONE
     Dosage: 40 MILLIGRAM DAILY;
     Route: 042
     Dates: start: 20171114
  13. ACICLOVIR [Concomitant]
     Active Substance: ACYCLOVIR
     Dosage: 2400 MILLIGRAM DAILY;
     Route: 048
     Dates: start: 20171110, end: 20171113
  14. SANDIMMUN [Concomitant]
     Active Substance: CYCLOSPORINE
     Dosage: 180 MILLIGRAM DAILY;
     Route: 065
     Dates: start: 20171113
  15. ENDOXAN BAXTER [Suspect]
     Active Substance: CYCLOPHOSPHAMIDE
     Indication: ALLOGENIC BONE MARROW TRANSPLANTATION THERAPY
     Dosage: 3300 MILLIGRAM DAILY;
     Route: 042
     Dates: start: 20171113, end: 20171114
  16. ALOXI 500 MICROGRAMS SOFT CAPSULES [Concomitant]
     Dates: start: 20171111
  17. UROMITEXAN [Concomitant]
     Active Substance: MESNA
     Dosage: 1100 MILLIGRAM DAILY;
     Dates: start: 20171115
  18. CIPROFLOXACIN. [Concomitant]
     Active Substance: CIPROFLOXACIN
     Dosage: 1000 MILLIGRAM DAILY;
     Route: 048
     Dates: start: 20171110, end: 20171115
  19. EMEND [Concomitant]
     Active Substance: APREPITANT
     Route: 048
     Dates: start: 20171111, end: 20171113
  20. FLUCONAZOLE. [Concomitant]
     Active Substance: FLUCONAZOLE
     Dosage: 350 MILLIGRAM DAILY;

REACTIONS (2)
  - Erythema [Recovering/Resolving]
  - Pyrexia [Recovering/Resolving]

NARRATIVE: CASE EVENT DATE: 20171128
